FAERS Safety Report 9053836 (Version 4)
Quarter: 2015Q1

REPORT INFORMATION
  Report Type: Report from Study
  Country: JP (occurrence: JP)
  Receive Date: 20130207
  Receipt Date: 20150227
  Transmission Date: 20150721
  Serious: Yes (Death, Other)
  Sender: FDA-Public Use
  Company Number: JP-GLAXOSMITHKLINE-B0864668A

PATIENT
  Age: 73 Year
  Sex: Male
  Weight: 55 kg

DRUGS (21)
  1. ATOVAQUONE. [Suspect]
     Active Substance: ATOVAQUONE
     Indication: PNEUMOCYSTIS JIROVECII PNEUMONIA
     Route: 048
     Dates: start: 20121205, end: 20121224
  2. VALACICLOVIR HYDROCHLORIDE [Suspect]
     Active Substance: VALACYCLOVIR HYDROCHLORIDE
     Dosage: 1000 MG, TID
     Route: 048
     Dates: start: 20121227, end: 20130102
  3. HERBESSER [Suspect]
     Active Substance: DILTIAZEM HYDROCHLORIDE
     Dosage: 100 MG, QD
     Route: 048
     Dates: end: 20130106
  4. PURSENNID [Suspect]
     Active Substance: SENNOSIDES A AND B
     Route: 048
     Dates: start: 20121129, end: 20130106
  5. BAKTAR [Suspect]
     Active Substance: SULFAMETHOXAZOLE\TRIMETHOPRIM
     Indication: PNEUMOCYSTIS JIROVECII PNEUMONIA
     Route: 048
     Dates: start: 20121203, end: 20121204
  6. WARFARIN [Suspect]
     Active Substance: WARFARIN
     Dosage: 1.5 MG, QD
     Route: 048
     Dates: start: 20121229, end: 20121230
  7. ATOVAQUONE. [Suspect]
     Active Substance: ATOVAQUONE
     Indication: ANTIFUNGAL PROPHYLAXIS
     Dosage: 1500 MG, QD
     Route: 048
     Dates: start: 20121229, end: 20130106
  8. RAIPECK [Suspect]
     Active Substance: ETODOLAC
     Route: 048
     Dates: start: 20121130, end: 20121207
  9. WARFARIN [Suspect]
     Active Substance: WARFARIN
     Route: 048
     Dates: start: 20121219, end: 20121228
  10. MUCOSTA [Suspect]
     Active Substance: REBAMIPIDE
     Route: 048
     Dates: start: 20121130, end: 20130106
  11. HYPEN [Suspect]
     Active Substance: ETODOLAC
     Route: 048
     Dates: start: 20121208, end: 20130106
  12. PREDONINE [Suspect]
     Active Substance: PREDNISOLONE\PREDNISOLONE ACETATE\PREDNISOLONE SODIUM SUCCINATE
     Indication: INTERSTITIAL LUNG DISEASE
     Dosage: 40 MG, QD
     Route: 048
     Dates: start: 20121102, end: 20121112
  13. PROTECADIN OD [Suspect]
     Active Substance: LAFUTIDINE
     Route: 048
     Dates: start: 20121102, end: 20130106
  14. LAC-B [Suspect]
     Active Substance: BIFIDOBACTERIUM SPP.
     Route: 048
     Dates: start: 20121115, end: 20130106
  15. PREDONINE [Suspect]
     Active Substance: PREDNISOLONE\PREDNISOLONE ACETATE\PREDNISOLONE SODIUM SUCCINATE
     Dosage: 60 MG, QD
     Route: 048
     Dates: start: 20121203, end: 20121205
  16. WARFARIN [Suspect]
     Active Substance: WARFARIN
     Dosage: 1 MG, QD
     Route: 048
     Dates: start: 20121231, end: 20130106
  17. PREDONINE [Suspect]
     Active Substance: PREDNISOLONE\PREDNISOLONE ACETATE\PREDNISOLONE SODIUM SUCCINATE
     Route: 048
     Dates: start: 20121113, end: 20121121
  18. PREDONINE [Suspect]
     Active Substance: PREDNISOLONE\PREDNISOLONE ACETATE\PREDNISOLONE SODIUM SUCCINATE
     Route: 048
     Dates: start: 20121122, end: 20121203
  19. BAKTAR [Suspect]
     Active Substance: SULFAMETHOXAZOLE\TRIMETHOPRIM
     Indication: INTERSTITIAL LUNG DISEASE
     Route: 048
     Dates: start: 20121225, end: 20121228
  20. FUNGUARD [Suspect]
     Active Substance: MICAFUNGIN SODIUM
     Route: 041
     Dates: start: 20121207, end: 20121225
  21. ACICLOVIR [Suspect]
     Active Substance: ACYCLOVIR
     Route: 041
     Dates: start: 20121225, end: 20121227

REACTIONS (3)
  - Henoch-Schonlein purpura [Fatal]
  - Thrombocytopenia [Fatal]
  - Blood urea increased [Fatal]

NARRATIVE: CASE EVENT DATE: 20130103
